FAERS Safety Report 8161401-1 (Version None)
Quarter: 2012Q1

REPORT INFORMATION
  Report Type: 
  Country: None (occurrence: None)
  Receive Date: 20120224
  Receipt Date: 20120214
  Transmission Date: 20120608
  Serious: Yes (Hospitalization)
  Sender: FDA-Public Use
  Company Number: CA-JNJFOC-20120208632

PATIENT
  Sex: Female

DRUGS (1)
  1. REMICADE [Suspect]
     Indication: CROHN'S DISEASE
     Route: 042
     Dates: start: 20120201

REACTIONS (4)
  - ANAL ABSCESS [None]
  - ANAL ULCER [None]
  - VAGINAL ABSCESS [None]
  - VAGINAL ULCERATION [None]
